FAERS Safety Report 16610180 (Version 1)
Quarter: 2019Q3

REPORT INFORMATION
  Report Type: Spontaneous
  Country: FR (occurrence: FR)
  Receive Date: 20190722
  Receipt Date: 20190722
  Transmission Date: 20191004
  Serious: Yes (Hospitalization)
  Sender: FDA-Public Use
  Company Number: FR-NAPPMUNDI-GBR-2019-0068314

PATIENT
  Age: 91 Year
  Sex: Male
  Weight: 87.6 kg

DRUGS (15)
  1. INNOHEP [Concomitant]
     Active Substance: TINZAPARIN SODIUM
  2. INSULINE GLARGINE [Concomitant]
     Active Substance: INSULIN GLARGINE
  3. DIFFU K [Concomitant]
     Active Substance: POTASSIUM CHLORIDE
  4. LOXEN [Concomitant]
  5. TAREG [Concomitant]
     Active Substance: VALSARTAN
  6. XELODA [Suspect]
     Active Substance: CAPECITABINE
     Indication: METASTATIC SQUAMOUS CELL CARCINOMA
     Dosage: 2000 MG, DAILY
     Route: 048
     Dates: end: 201805
  7. FUROSEMIDE. [Concomitant]
     Active Substance: FUROSEMIDE
  8. PRIMPERAN [Concomitant]
     Active Substance: METOCLOPRAMIDE HYDROCHLORIDE
  9. ATORVASTATINE [Concomitant]
     Active Substance: ATORVASTATIN
  10. OXYNORM [Suspect]
     Active Substance: OXYCODONE HYDROCHLORIDE
     Indication: PAIN
     Dosage: 10 MG, Q3D
     Route: 048
     Dates: end: 20190513
  11. FENTANYL. [Suspect]
     Active Substance: FENTANYL
     Indication: PAIN
     Dosage: 12 MCG, Q3D
     Route: 062
  12. DOLIPRANE [Concomitant]
     Active Substance: ACETAMINOPHEN
  13. GALVUS [Concomitant]
     Active Substance: VILDAGLIPTIN
  14. AMIODARONE [Concomitant]
     Active Substance: AMIODARONE
  15. NOVORAPID [Concomitant]
     Active Substance: INSULIN ASPART

REACTIONS (3)
  - Confusional state [Recovered/Resolved]
  - Somnolence [Recovered/Resolved]
  - Acute kidney injury [Recovering/Resolving]

NARRATIVE: CASE EVENT DATE: 201905
